FAERS Safety Report 7187677-5 (Version None)
Quarter: 2010Q4

REPORT INFORMATION
  Report Type: 
  Country: None (occurrence: None)
  Receive Date: 20101222
  Receipt Date: 20100702
  Transmission Date: 20110411
  Serious: No
  Sender: FDA-Public Use
  Company Number: US-AMGEN-KDL422076

PATIENT

DRUGS (13)
  1. ENBREL [Suspect]
     Indication: PRODUCT USED FOR UNKNOWN INDICATION
     Dosage: 50 MG, QWK
     Route: 058
  2. MORPHINE SULFATE [Concomitant]
     Dosage: 15 MG, UNK
  3. METHOTREXATE [Concomitant]
     Dosage: 2.5 MG, UNK
  4. DIPHENHYDRAMINE HYDROCHLORIDE [Concomitant]
     Dosage: 25 MG, UNK
  5. TRAZODONE HCL [Concomitant]
     Dosage: 50 MG, UNK
  6. CITALOPRAM [Concomitant]
     Dosage: 10 MG, UNK
  7. PHENOXYMETHYLPENICILLIN [Concomitant]
     Dosage: 250 MG, UNK
  8. OMEPRAZOLE [Concomitant]
     Dosage: 10 MG, UNK
  9. HYDROXYCHLOROQUINE [Concomitant]
     Dosage: 200 MG, UNK
  10. HYDROCODONE BITARTRATE [Concomitant]
     Dosage: UNK UNK, UNK
  11. FOLIC ACID [Concomitant]
     Dosage: 1 MG, UNK
  12. BUTALBITAL [Concomitant]
     Dosage: UNK UNK, UNK
  13. ALBUTEROL SULFATE [Concomitant]

REACTIONS (1)
  - TOOTH INFECTION [None]
